FAERS Safety Report 8542103-6 (Version None)
Quarter: 2012Q3

REPORT INFORMATION
  Report Type: 
  Country: None (occurrence: None)
  Receive Date: 20120726
  Receipt Date: 20111209
  Transmission Date: 20120928
  Serious: No
  Sender: FDA-Public Use
  Company Number: US-ASTRAZENECA-2011SE61982

PATIENT
  Age: 54 Year
  Sex: Male

DRUGS (2)
  1. SEROQUEL [Suspect]
     Route: 048
  2. SEROQUEL [Suspect]
     Route: 048

REACTIONS (7)
  - SLEEP DISORDER [None]
  - RESTLESSNESS [None]
  - MALAISE [None]
  - WRONG TECHNIQUE IN DRUG USAGE PROCESS [None]
  - FEELING ABNORMAL [None]
  - DRUG WITHDRAWAL SYNDROME [None]
  - DRUG DOSE OMISSION [None]
